FAERS Safety Report 6267190-X (Version None)
Quarter: 2009Q3

REPORT INFORMATION
  Report Type: 
  Country: None (occurrence: None)
  Receive Date: 20090714
  Receipt Date: 20090605
  Transmission Date: 20100115
  Serious: No
  Sender: FDA-Public Use
  Company Number: US-BAYER-200910864BCC

PATIENT
  Age: 39 Year
  Sex: Male

DRUGS (2)
  1. ALEVE (CAPLET) [Suspect]
     Indication: DRUG USE FOR UNKNOWN INDICATION
     Dosage: TOTAL DAILY DOSE: 440 MG  UNIT DOSE: 220 MG
     Route: 048
     Dates: start: 20090317
  2. ZOLOFT [Concomitant]
     Indication: DRUG USE FOR UNKNOWN INDICATION
     Dosage: TAKE ZOLOFT 25MG AT BEDTIME
     Route: 048

REACTIONS (5)
  - DYSGEUSIA [None]
  - NERVOUSNESS [None]
  - PANIC ATTACK [None]
  - PRURITUS [None]
  - VISION BLURRED [None]
